FAERS Safety Report 9714732 (Version 1)
Quarter: 2013Q4

REPORT INFORMATION
  Report Type: Spontaneous
  Country: DE (occurrence: DE)
  Receive Date: 20131126
  Receipt Date: 20131126
  Transmission Date: 20140711
  Serious: Yes (Other)
  Sender: FDA-Public Use
  Company Number: DE-MYLANLABS-2013S1025900

PATIENT
  Sex: Male
  Weight: 3.48 kg

DRUGS (4)
  1. CITALOPRAM [Suspect]
     Dosage: 20 [MG/D ]
     Route: 064
  2. FOLIC ACID [Concomitant]
     Route: 064
     Dates: start: 20120305, end: 20121030
  3. AZITHROMYCIN [Concomitant]
     Route: 064
  4. SPIROPENT [Concomitant]
     Route: 064
     Dates: start: 20120922, end: 20121009

REACTIONS (4)
  - Hyperbilirubinaemia neonatal [Recovered/Resolved]
  - Convulsion neonatal [Unknown]
  - Haemolytic anaemia [Recovered/Resolved]
  - Exposure during pregnancy [Recovered/Resolved]
